FAERS Safety Report 6307034-0 (Version None)
Quarter: 2009Q3

REPORT INFORMATION
  Report Type: 
  Country: None (occurrence: None)
  Receive Date: 20090812
  Receipt Date: 20090805
  Transmission Date: 20100115
  Serious: Yes (Other)
  Sender: FDA-Public Use
  Company Number: PHHY2009CA32890

PATIENT
  Sex: Female

DRUGS (2)
  1. ACLASTA [Suspect]
     Indication: OSTEOPOROSIS
     Dosage: 5 MG, UNK
     Route: 042
  2. ACLASTA [Suspect]
     Dosage: UNK
     Dates: start: 20090422, end: 20090422

REACTIONS (2)
  - ABDOMINAL DISCOMFORT [None]
  - INTESTINAL FUNCTIONAL DISORDER [None]
